FAERS Safety Report 8643421 (Version 5)
Quarter: 2020Q3

REPORT INFORMATION
  Report Type: Report from Study
  Country: BR (occurrence: BR)
  Receive Date: 20120629
  Receipt Date: 20130506
  Transmission Date: 20201105
  Serious: Yes (Other)
  Sender: FDA-Public Use
  Company Number: BR-ROCHE-1082320

PATIENT
  Age: 56 Year
  Sex: Female
  Weight: 67 kg

DRUGS (15)
  1. PANTOPRAZOLE [Concomitant]
     Active Substance: PANTOPRAZOLE
  2. PERIDAL [Concomitant]
  3. DICLOFENAC GEL [Concomitant]
  4. PREDSIM [Concomitant]
     Active Substance: PREDNISOLONE
  5. MABTHERA [Suspect]
     Active Substance: RITUXIMAB
     Indication: RHEUMATOID ARTHRITIS
     Dosage: LAST RITUXIMAB INFUSION:28/AUG/2012
     Route: 042
     Dates: start: 201005
  6. IBANDRONIC ACID. [Suspect]
     Active Substance: IBANDRONIC ACID
     Indication: BONE LOSS
     Route: 065
  7. DEPURA [Concomitant]
  8. DIVELOL [Concomitant]
  9. MABTHERA [Suspect]
     Active Substance: RITUXIMAB
     Route: 042
     Dates: start: 201006
  10. MABTHERA [Suspect]
     Active Substance: RITUXIMAB
     Route: 042
     Dates: start: 20090701
  11. NAPROXEN. [Concomitant]
     Active Substance: NAPROXEN
  12. OLCADIL [Concomitant]
     Active Substance: CLOXAZOLAM
  13. DORMONID (BRAZIL) [Concomitant]
  14. ARCOXIA [Concomitant]
     Active Substance: ETORICOXIB
  15. LABIRIN [Concomitant]

REACTIONS (20)
  - Bone loss [Not Recovered/Not Resolved]
  - Walking disability [Unknown]
  - Ill-defined disorder [Not Recovered/Not Resolved]
  - Bursitis [Not Recovered/Not Resolved]
  - Pain [Not Recovered/Not Resolved]
  - Fatigue [Unknown]
  - Gait disturbance [Not Recovered/Not Resolved]
  - Gingivitis [Recovering/Resolving]
  - Dental restoration failure [Not Recovered/Not Resolved]
  - Muscle disorder [Unknown]
  - Immunodeficiency [Unknown]
  - Genital herpes [Recovering/Resolving]
  - Hyperthyroidism [Unknown]
  - Thyroid mass [Unknown]
  - Nasopharyngitis [Recovering/Resolving]
  - Renal cyst [Unknown]
  - Drug ineffective [Unknown]
  - Tooth loss [Not Recovered/Not Resolved]
  - Intervertebral disc protrusion [Unknown]
  - Bursitis [Unknown]

NARRATIVE: CASE EVENT DATE: 20120903
